FAERS Safety Report 10563093 (Version 1)
Quarter: 2014Q4

REPORT INFORMATION
  Report Type: Spontaneous
  Country: US (occurrence: None)
  Receive Date: 20141103
  Receipt Date: 20141103
  Transmission Date: 20150529
  Serious: No
  Sender: FDA-Public Use
  Company Number: None

PATIENT
  Age: 34 Year
  Sex: Female
  Weight: 63.5 kg

DRUGS (2)
  1. MUCINEX DM [Suspect]
     Active Substance: DEXTROMETHORPHAN HYDROBROMIDE\GUAIFENESIN
     Indication: PULMONARY CONGESTION
     Dosage: 1 PILL, TAKEN BY MOUTH
     Route: 048
     Dates: start: 20141023
  2. MUCINEX DM [Suspect]
     Active Substance: DEXTROMETHORPHAN HYDROBROMIDE\GUAIFENESIN
     Indication: COUGH
     Dosage: 1 PILL, TAKEN BY MOUTH
     Route: 048
     Dates: start: 20141023

REACTIONS (7)
  - Balance disorder [None]
  - Feeling drunk [None]
  - Somnolence [None]
  - Confusional state [None]
  - Dizziness [None]
  - Dysarthria [None]
  - Overdose [None]

NARRATIVE: CASE EVENT DATE: 20141031
